FAERS Safety Report 7676707-X (Version None)
Quarter: 2011Q3

REPORT INFORMATION
  Report Type: 
  Country: None (occurrence: None)
  Receive Date: 20110805
  Receipt Date: 20110721
  Transmission Date: 20111222
  Serious: Yes (Hospitalization, Other)
  Sender: FDA-Public Use
  Company Number: 2011MA009275

PATIENT
  Age: 51 Year
  Sex: Female

DRUGS (1)
  1. INDAPAMIDE [Suspect]
     Indication: HYPERTENSION

REACTIONS (8)
  - PARAESTHESIA [None]
  - RHABDOMYOLYSIS [None]
  - METABOLIC ALKALOSIS [None]
  - BLOOD CREATININE INCREASED [None]
  - HYPERALDOSTERONISM [None]
  - BLOOD UREA INCREASED [None]
  - HYPOKALAEMIA [None]
  - ADRENAL ADENOMA [None]
